FAERS Safety Report 15314503 (Version 3)
Quarter: 2019Q2

REPORT INFORMATION
  Report Type: Spontaneous
  Country: AT (occurrence: AT)
  Receive Date: 20180824
  Receipt Date: 20190517
  Transmission Date: 20190711
  Serious: Yes (Death)
  Sender: FDA-Public Use
  Company Number: AT-AXELLIA-001891

PATIENT
  Age: 76 Year
  Sex: Male

DRUGS (17)
  1. SULFAMETROLE/TRIMETHOPRIM [Concomitant]
     Indication: PROPHYLAXIS
  2. AVIBACTAM/CEFTAZIDIME [Concomitant]
     Indication: PROPHYLAXIS
  3. GRANULOCYTE COLONY STIMULATING [Concomitant]
     Active Substance: GRANULOCYTE COLONY-STIMULATING FACTOR NOS
     Indication: NEUTROPENIA
     Dosage: (48 MIO IU/DAY, S.C.)
     Route: 058
  4. CIPROFLOXACIN. [Concomitant]
     Active Substance: CIPROFLOXACIN
     Indication: PROPHYLAXIS
  5. LINEZOLID. [Concomitant]
     Active Substance: LINEZOLID
     Indication: PROPHYLAXIS
  6. VORICONAZOLE. [Suspect]
     Active Substance: VORICONAZOLE
     Indication: ANTIFUNGAL TREATMENT
  7. PREDNISOLONE. [Concomitant]
     Active Substance: PREDNISOLONE
     Indication: IMMUNOSUPPRESSION
     Dosage: 50MG/D-0.6 MG/KG ON POSTOPERATIVE DAY BY TAPERING
  8. MEROPENEM. [Concomitant]
     Active Substance: MEROPENEM
     Indication: PROPHYLAXIS
  9. PIPERACILLIN/TAZOBACTAM [Concomitant]
     Indication: PROPHYLAXIS
  10. CEFTOLOZANE/TAZOBACTAM [Concomitant]
     Indication: PROPHYLAXIS
  11. TACROLIMUS. [Concomitant]
     Active Substance: TACROLIMUS
     Indication: IMMUNOSUPPRESSION
     Dosage: 0.1 MG/KG BODY WEIGHT
  12. AMPHOTERICIN B/AMPHOTERICIN B/LIPOSOME [Concomitant]
     Indication: ANTIFUNGAL PROPHYLAXIS
     Dosage: 10 MG/EVERY 8 H
     Route: 055
  13. GENTAMICIN. [Concomitant]
     Active Substance: GENTAMICIN
     Indication: PROPHYLAXIS
  14. CEFEPIME [Concomitant]
     Active Substance: CEFEPIME HYDROCHLORIDE
     Indication: PROPHYLAXIS
  15. ANIDULAFUNGIN [Concomitant]
     Active Substance: ANIDULAFUNGIN
     Indication: ANTIFUNGAL PROPHYLAXIS
     Dosage: PARENTERAL ANIDULAFUNGIN (100 MG/DAY)
  16. FLUCONAZOLE. [Concomitant]
     Active Substance: FLUCONAZOLE
     Indication: ANTIFUNGAL PROPHYLAXIS
     Dosage: PARENTERAL (600 MG/DAY)
     Route: 051
  17. TEICOPLANIN [Concomitant]
     Active Substance: TEICOPLANIN
     Indication: PROPHYLAXIS

REACTIONS (2)
  - Condition aggravated [Fatal]
  - Drug ineffective [Fatal]
